FAERS Safety Report 8776208 (Version 2)
Quarter: 2012Q4

REPORT INFORMATION
  Report Type: 
  Country: US (occurrence: US)
  Receive Date: 20120910
  Receipt Date: 20121022
  Transmission Date: 20130627
  Serious: Yes (Other)
  Sender: FDA-Public Use
  Company Number: US-PFIZER INC-2012218276

PATIENT
  Age: 54 Year
  Sex: Female
  Weight: 68.03 kg

DRUGS (3)
  1. ESTRING [Suspect]
     Indication: VULVOVAGINAL DRYNESS
     Dosage: UNK
     Route: 067
     Dates: start: 20110615
  2. ASACOL [Concomitant]
     Indication: CROHN^S DISEASE
     Dosage: UNK
  3. ZOLOFT [Concomitant]
     Dosage: UNK

REACTIONS (2)
  - Crohn^s disease [Unknown]
  - Drug effect decreased [Unknown]
